FAERS Safety Report 8587691-9 (Version None)
Quarter: 2012Q3

REPORT INFORMATION
  Report Type: 
  Country: None (occurrence: None)
  Receive Date: 20120813
  Receipt Date: 20120808
  Transmission Date: 20120928
  Serious: Yes (Hospitalization)
  Sender: FDA-Public Use
  Company Number: US-AMGEN-USASP2012041702

PATIENT
  Age: 72 Year
  Sex: Female
  Weight: 72.562 kg

DRUGS (10)
  1. COQ10                              /00517201/ [Concomitant]
  2. VITAMIN E                          /00110501/ [Concomitant]
  3. ANTIBIOTICS [Concomitant]
     Dates: start: 20120301, end: 20120704
  4. DOMPERIDONE [Concomitant]
     Indication: HIATUS HERNIA
  5. AMLODIPINE [Concomitant]
     Dosage: UNK UNK, QD
  6. PROLIA [Suspect]
     Indication: OSTEOPOROSIS POSTMENOPAUSAL
     Dosage: 60 MG, Q6MO
     Route: 058
     Dates: start: 20120229
  7. VITAMIN D [Concomitant]
     Dosage: 1 UNK, UNK
  8. VITAMIN B COMPLEX CAP [Concomitant]
  9. ASPIRIN [Concomitant]
     Dosage: UNK
  10. VITAMIN C                          /00008001/ [Concomitant]

REACTIONS (4)
  - COLON OPERATION [None]
  - DIVERTICULITIS [None]
  - COMPRESSION FRACTURE [None]
  - GASTROINTESTINAL DISORDER [None]
